FAERS Safety Report 8478476 (Version 2)
Quarter: 2012Q4

REPORT INFORMATION
  Report Type: 
  Country: US (occurrence: US)
  Receive Date: 20120327
  Receipt Date: 20121113
  Transmission Date: 20130627
  Serious: Yes (Hospitalization)
  Sender: FDA-Public Use
  Company Number: US-GLAXOSMITHKLINE-A0971201A

PATIENT
  Age: 45 Year
  Sex: Female
  Weight: 60 kg

DRUGS (3)
  1. FLOLAN [Suspect]
     Indication: PULMONARY ARTERIAL HYPERTENSION
     Dosage: 62NGKM Unknown
     Route: 042
     Dates: start: 20020328
  2. COUMADIN [Concomitant]
     Dosage: 15MG per day
     Route: 048
  3. REVATIO [Concomitant]
     Dosage: 40MGD per day

REACTIONS (6)
  - Pancreatitis [Recovering/Resolving]
  - Nausea [Recovering/Resolving]
  - Vomiting [Recovering/Resolving]
  - Abdominal pain lower [Recovering/Resolving]
  - Device infusion issue [Recovered/Resolved]
  - Dizziness [Recovered/Resolved]
